FAERS Safety Report 8000210-0 (Version None)
Quarter: 2011Q4

REPORT INFORMATION
  Report Type: 
  Country: None (occurrence: None)
  Receive Date: 20111220
  Receipt Date: 20111220
  Transmission Date: 20120403
  Serious: No
  Sender: FDA-Public Use
  Company Number: None

PATIENT
  Sex: Male

DRUGS (1)
  1. COPAXONE [Suspect]
     Dosage: 20MG DAILY SUBQ
     Route: 058
     Dates: start: 20111125, end: 20111125

REACTIONS (2)
  - DYSPNOEA [None]
  - PAIN [None]
